FAERS Safety Report 12911936 (Version 1)
Quarter: 2016Q4

REPORT INFORMATION
  Report Type: Spontaneous
  Country: BR (occurrence: BR)
  Receive Date: 20161104
  Receipt Date: 20161104
  Transmission Date: 20170207
  Serious: Yes (Hospitalization, Other)
  Sender: FDA-Public Use
  Company Number: BR-GLAXOSMITHKLINE-BR2016GSK160184

PATIENT
  Sex: Female
  Weight: 92 kg

DRUGS (7)
  1. RELVAR ELLIPTA [Suspect]
     Active Substance: FLUTICASONE FUROATE\VILANTEROL TRIFENATATE
     Indication: APNOEA
     Dosage: 1 PUFF(S), QD
     Route: 055
  2. TECTA (PANTAPRAZOLE) [Suspect]
     Active Substance: PANTOPRAZOLE MAGNESIUM
     Indication: PRODUCT USED FOR UNKNOWN INDICATION
  3. DIGEDRAT [Concomitant]
  4. SIMVASTATINE [Concomitant]
     Active Substance: SIMVASTATIN
  5. RELVAR ELLIPTA [Suspect]
     Active Substance: FLUTICASONE FUROATE\VILANTEROL TRIFENATATE
     Indication: PNEUMONIA
  6. SOMALGIN (ASPIRIN) [Concomitant]
  7. HYDROCHLOROTHIAZIDE. [Concomitant]
     Active Substance: HYDROCHLOROTHIAZIDE

REACTIONS (9)
  - Medication error [Not Recovered/Not Resolved]
  - Product use issue [Not Recovered/Not Resolved]
  - Chronic obstructive pulmonary disease [Unknown]
  - Ulcer [Unknown]
  - Sleep apnoea syndrome [Not Recovered/Not Resolved]
  - Pneumonia [Not Recovered/Not Resolved]
  - Back pain [Unknown]
  - Ear disorder [Unknown]
  - Haematemesis [Unknown]
